FAERS Safety Report 18151524 (Version 1)
Quarter: 2020Q3

REPORT INFORMATION
  Report Type: Report from Study
  Country: US (occurrence: US)
  Receive Date: 20200814
  Receipt Date: 20200814
  Transmission Date: 20201103
  Serious: Yes (Other)
  Sender: FDA-Public Use
  Company Number: US-MYLANLABS-2020M1070401

PATIENT
  Age: 45 Year
  Sex: Female

DRUGS (1)
  1. GLATIRAMER ACETATE INJECTION [Suspect]
     Active Substance: GLATIRAMER ACETATE
     Indication: RELAPSING-REMITTING MULTIPLE SCLEROSIS
     Dosage: 40 MILLIGRAM, 3XW
     Route: 065

REACTIONS (7)
  - Stress [Recovered/Resolved]
  - Loss of consciousness [Recovered/Resolved]
  - Injection site pain [Unknown]
  - Feeling abnormal [Unknown]
  - Mobility decreased [Recovering/Resolving]
  - Contusion [Unknown]
  - Cervix carcinoma [Unknown]

NARRATIVE: CASE EVENT DATE: 20200731
